FAERS Safety Report 12117658 (Version 1)
Quarter: 2016Q1

REPORT INFORMATION
  Report Type: Spontaneous
  Country: US (occurrence: US)
  Receive Date: 20160226
  Receipt Date: 20160226
  Transmission Date: 20160526
  Serious: Yes (Other)
  Sender: FDA-Public Use
  Company Number: US-ROCHE-1715814

PATIENT
  Sex: Female

DRUGS (1)
  1. TAMIFLU [Suspect]
     Active Substance: OSELTAMIVIR PHOSPHATE
     Indication: INFLUENZA
     Route: 065
     Dates: start: 20160217, end: 20160220

REACTIONS (6)
  - Mental impairment [Unknown]
  - Disorientation [Unknown]
  - Disturbance in attention [Unknown]
  - Confusional state [Not Recovered/Not Resolved]
  - Derealisation [Unknown]
  - Anal incontinence [Not Recovered/Not Resolved]
